FAERS Safety Report 13924966 (Version 1)
Quarter: 2017Q3

REPORT INFORMATION
  Report Type: Not Available
  Country: SE (occurrence: SE)
  Receive Date: 20170831
  Receipt Date: 20170831
  Transmission Date: 20171127
  Serious: Yes (Death)
  Sender: FDA-Public Use
  Company Number: SE-ANIPHARMA-2017-SE-000006

PATIENT
  Age: 48 Year
  Sex: Female

DRUGS (2)
  1. LITHIUM CARBONATE (NON-SPECIFIC) [Suspect]
     Active Substance: LITHIUM
  2. SERTRALINE [Concomitant]
     Active Substance: SERTRALINE HYDROCHLORIDE

REACTIONS (5)
  - Toxicity to various agents [Fatal]
  - Myocardial ischaemia [Fatal]
  - Emphysema [Fatal]
  - Death [Fatal]
  - Hypervolaemia [Fatal]
